FAERS Safety Report 6661309-4 (Version None)
Quarter: 2010Q1

REPORT INFORMATION
  Report Type: 
  Country: None (occurrence: None)
  Receive Date: 20100331
  Receipt Date: 20100319
  Transmission Date: 20100710
  Serious: Yes (Hospitalization, Other)
  Sender: FDA-Public Use
  Company Number: PHEH2010US03202

PATIENT
  Sex: Female
  Weight: 55.45 kg

DRUGS (14)
  1. EXJADE [Suspect]
     Indication: ACUTE MYELOID LEUKAEMIA
     Dosage: 500 MG, QD
     Route: 048
     Dates: start: 20091106
  2. FLUCONAZOLE [Concomitant]
  3. LORAZEPAM [Concomitant]
  4. VFEND [Concomitant]
  5. LEVAQUIN [Concomitant]
  6. ACYCLOVIR [Concomitant]
  7. DIOVAN [Concomitant]
  8. LEVOTHYROXINE SODIUM [Concomitant]
  9. LEXAPRO [Concomitant]
  10. CIPRO [Concomitant]
  11. ATENOLOL [Concomitant]
  12. METFORMIN (GLUCOPHAGE) [Concomitant]
  13. ACTONEL [Concomitant]
  14. ANTACID ^GNC^ [Concomitant]

REACTIONS (4)
  - CHEMOTHERAPY [None]
  - NEUTROPENIA [None]
  - ODYNOPHAGIA [None]
  - OESOPHAGITIS [None]
